FAERS Safety Report 7116021-4 (Version None)
Quarter: 2010Q4

REPORT INFORMATION
  Report Type: 
  Country: None (occurrence: None)
  Receive Date: 20101122
  Receipt Date: 20101112
  Transmission Date: 20110411
  Serious: Yes (Hospitalization)
  Sender: FDA-Public Use
  Company Number: NL-SANOFI-AVENTIS-2010SA045162

PATIENT
  Age: 65 Year
  Sex: Male
  Weight: 102 kg

DRUGS (9)
  1. MULTAQ [Suspect]
     Indication: ATRIAL FIBRILLATION
     Route: 048
     Dates: start: 20100722, end: 20100805
  2. METOPROLOL TARTRATE [Concomitant]
     Indication: ATRIAL FIBRILLATION
     Dates: start: 20100512
  3. METOPROLOL TARTRATE [Concomitant]
     Indication: HYPERTENSION
     Dates: start: 20100512
  4. METOPROLOL TARTRATE [Concomitant]
  5. METOPROLOL TARTRATE [Concomitant]
  6. LOSARTAN [Concomitant]
     Indication: HYPERTENSION
     Dates: start: 20100512
  7. MARCUMAR [Concomitant]
     Indication: ATRIAL FIBRILLATION
     Dates: start: 20100507, end: 20100731
  8. MARCUMAR [Concomitant]
     Dates: start: 20100803
  9. CLEXANE [Concomitant]
     Indication: THROMBOSIS PROPHYLAXIS
     Dates: start: 20100731, end: 20100803

REACTIONS (1)
  - ANGINA UNSTABLE [None]
